FAERS Safety Report 15712916 (Version 1)
Quarter: 2018Q4

REPORT INFORMATION
  Report Type: Spontaneous
  Country: US (occurrence: US)
  Receive Date: 20181129
  Receipt Date: 20181129
  Transmission Date: 20190205
  Serious: Yes (Hospitalization)
  Sender: FDA-Public Use
  Company Number: None

PATIENT
  Age: 67 Year
  Sex: Female
  Weight: 72.12 kg

DRUGS (10)
  1. RED RICE YEAST [Concomitant]
     Active Substance: DIETARY SUPPLEMENT
  2. BACLOFEN 10 [Concomitant]
     Active Substance: BACLOFEN
  3. CITALOPRAM [Suspect]
     Active Substance: CITALOPRAM HYDROBROMIDE
     Indication: MULTIPLE SCLEROSIS
     Dosage: ?          QUANTITY:1 PILL;OTHER FREQUENCY:1X;?
     Route: 048
  4. AMLODIPINE [Concomitant]
     Active Substance: AMLODIPINE BESYLATE
  5. LEVOTHYROXIN 25MG [Concomitant]
  6. BIOTINE [Concomitant]
     Active Substance: LACTOPEROXIDASE BOVINE\LYSOZYME HYDROCHLORIDE
  7. GARLIC. [Concomitant]
     Active Substance: GARLIC
  8. CITALOPRAM [Concomitant]
     Active Substance: CITALOPRAM HYDROBROMIDE
  9. VITAMIN D3 [Concomitant]
     Active Substance: CHOLECALCIFEROL
  10. LOSARTIN 50 MG [Concomitant]

REACTIONS (3)
  - Headache [None]
  - Haematemesis [None]
  - Nausea [None]

NARRATIVE: CASE EVENT DATE: 20180925
